FAERS Safety Report 18556112 (Version 5)
Quarter: 2022Q1

REPORT INFORMATION
  Report Type: Spontaneous
  Country: US (occurrence: US)
  Receive Date: 20201128
  Receipt Date: 20220317
  Transmission Date: 20220423
  Serious: Yes (Other)
  Sender: FDA-Public Use
  Company Number: US-MALLINCKRODT-T202005519

PATIENT
  Sex: Female
  Weight: 71 kg

DRUGS (4)
  1. H.P. ACTHAR [Suspect]
     Active Substance: CORTICOTROPIN
     Indication: Rheumatoid arthritis
     Dosage: 80 UNITS/1 MILLILITER 5 TIMES WEEKLY, AS DIRECTED
     Route: 058
     Dates: start: 202004, end: 2020
  2. H.P. ACTHAR [Suspect]
     Active Substance: CORTICOTROPIN
     Indication: Stress fracture
     Dosage: 80 UNITS/1 MILLILITER 5 TIMES WEEKLY, AS DIRECTED
     Route: 058
     Dates: start: 2020, end: 202112
  3. H.P. ACTHAR [Suspect]
     Active Substance: CORTICOTROPIN
     Indication: Senile osteoporosis
     Dosage: 80 UNITS/1 MILLILITER 5 TIMES WEEKLY, AS DIRECTED
     Route: 058
     Dates: start: 202112
  4. H.P. ACTHAR [Suspect]
     Active Substance: CORTICOTROPIN
     Indication: Osteoporotic fracture

REACTIONS (10)
  - Urinary tract infection [Recovering/Resolving]
  - Rheumatoid arthritis [Unknown]
  - Stress fracture [Unknown]
  - Senile osteoporosis [Unknown]
  - Osteoporotic fracture [Unknown]
  - Condition aggravated [Unknown]
  - Arthralgia [Unknown]
  - Pain [Not Recovered/Not Resolved]
  - Product dose omission issue [Not Recovered/Not Resolved]
  - Therapeutic product effect delayed [Unknown]

NARRATIVE: CASE EVENT DATE: 20200101
